FAERS Safety Report 24944898 (Version 1)
Quarter: 2025Q1

REPORT INFORMATION
  Report Type: Spontaneous
  Country: US (occurrence: US)
  Receive Date: 20250208
  Receipt Date: 20250208
  Transmission Date: 20250408
  Serious: No
  Sender: SANOFI AVENTIS
  Company Number: US-SA-2025SA034323

PATIENT

DRUGS (1)
  1. TAXOTERE [Suspect]
     Active Substance: DOCETAXEL
     Dates: start: 201010, end: 201102

REACTIONS (4)
  - Lacrimal structural disorder [Unknown]
  - Dry eye [Unknown]
  - Keratopathy [Unknown]
  - Lacrimation increased [Unknown]
